FAERS Safety Report 5530902-4 (Version None)
Quarter: 2007Q4

REPORT INFORMATION
  Report Type: 
  Country: None (occurrence: None)
  Receive Date: 20071130
  Receipt Date: 20071127
  Transmission Date: 20080405
  Serious: Yes (Other)
  Sender: FDA-Public Use
  Company Number: US-ASTRAZENECA-2007UW25238

PATIENT
  Sex: Female
  Weight: 57.7 kg

DRUGS (1)
  1. NEXIUM [Suspect]
     Indication: GASTROOESOPHAGEAL REFLUX DISEASE
     Route: 050
     Dates: start: 20071016, end: 20071016

REACTIONS (2)
  - FEEDING TUBE COMPLICATION [None]
  - INCORRECT ROUTE OF DRUG ADMINISTRATION [None]
